FAERS Safety Report 7025369-3 (Version None)
Quarter: 2010Q4

REPORT INFORMATION
  Report Type: 
  Country: None (occurrence: None)
  Receive Date: 20101001
  Receipt Date: 20100921
  Transmission Date: 20110411
  Serious: Yes (Other)
  Sender: FDA-Public Use
  Company Number: PHHY2010CN55767

PATIENT
  Age: 26 Year
  Sex: Female

DRUGS (1)
  1. SEBIVO [Suspect]
     Dosage: UNK
     Dates: end: 20100826

REACTIONS (3)
  - CAESAREAN SECTION [None]
  - DRUG EXPOSURE DURING PREGNANCY [None]
  - NORMAL NEWBORN [None]
